FAERS Safety Report 7985703-4 (Version None)
Quarter: 2011Q4

REPORT INFORMATION
  Report Type: 
  Country: None (occurrence: None)
  Receive Date: 20111216
  Receipt Date: 20111216
  Transmission Date: 20120403
  Serious: Yes (Hospitalization)
  Sender: FDA-Public Use
  Company Number: None

PATIENT
  Age: 71 Year
  Sex: Female
  Weight: 54 kg

DRUGS (1)
  1. PROTONIX [Suspect]
     Indication: DYSPEPSIA
     Dosage: 40 MG
     Route: 048
     Dates: start: 20111014, end: 20111015

REACTIONS (4)
  - PALPITATIONS [None]
  - TUBULOINTERSTITIAL NEPHRITIS [None]
  - DIZZINESS [None]
  - RASH MACULO-PAPULAR [None]
